FAERS Safety Report 11645768 (Version 1)
Quarter: 2015Q4

REPORT INFORMATION
  Report Type: Spontaneous
  Country: US (occurrence: US)
  Receive Date: 20151020
  Receipt Date: 20151020
  Transmission Date: 20160304
  Serious: No
  Sender: FDA-Public Use
  Company Number: US-AMGEN-USASP2015079606

PATIENT
  Age: 46 Year
  Sex: Female

DRUGS (2)
  1. CORLANOR [Suspect]
     Active Substance: IVABRADINE HYDROCHLORIDE
     Indication: HEART RATE INCREASED
     Dosage: 5 MG, BID
     Route: 065
     Dates: start: 2015
  2. CORLANOR [Suspect]
     Active Substance: IVABRADINE HYDROCHLORIDE
     Indication: HYPOTENSION

REACTIONS (14)
  - Fatigue [Unknown]
  - Dyspepsia [Unknown]
  - Urinary tract infection [Unknown]
  - Asthenia [Unknown]
  - Off label use [Unknown]
  - Heart rate increased [Unknown]
  - Feeling abnormal [Unknown]
  - Musculoskeletal pain [Unknown]
  - Dizziness [Unknown]
  - Pain in jaw [Unknown]
  - Chest pain [Unknown]
  - Energy increased [Unknown]
  - Alopecia [Not Recovered/Not Resolved]
  - Extrasystoles [Unknown]

NARRATIVE: CASE EVENT DATE: 2015
